FAERS Safety Report 23605998 (Version 1)
Quarter: 2024Q1

REPORT INFORMATION
  Report Type: Spontaneous
  Country: US (occurrence: US)
  Receive Date: 20240307
  Receipt Date: 20240307
  Transmission Date: 20240409
  Serious: Yes (Death, Hospitalization)
  Sender: FDA-Public Use
  Company Number: US-MYLANLABS-2024M1020435

PATIENT
  Age: 47 Year
  Sex: Male

DRUGS (1)
  1. AMIODARONE [Suspect]
     Active Substance: AMIODARONE
     Indication: Atrial fibrillation
     Dosage: UNK
     Route: 042

REACTIONS (6)
  - Cardiac arrest [Fatal]
  - Acute hepatic failure [Fatal]
  - Coagulopathy [Fatal]
  - Hypertransaminasaemia [Fatal]
  - Condition aggravated [Fatal]
  - Off label use [Fatal]
